FAERS Safety Report 18672785 (Version 1)
Quarter: 2020Q4

REPORT INFORMATION
  Report Type: Spontaneous
  Country: NL (occurrence: NL)
  Receive Date: 20201229
  Receipt Date: 20201229
  Transmission Date: 20210114
  Serious: Yes (Other)
  Sender: FDA-Public Use
  Company Number: NL-SUN PHARMACEUTICAL INDUSTRIES LTD-2020RR-273056

PATIENT
  Sex: Male

DRUGS (6)
  1. TAMSULOSIN [Suspect]
     Active Substance: TAMSULOSIN
     Indication: BENIGN PROSTATIC HYPERPLASIA
     Dosage: 1X PER DAG 1 STUK
     Route: 065
     Dates: start: 20200205
  2. FLUTICASON INHALATIEPOEDER 250UG/DO / FLIXOTIDE DISKUS INHPDR 250MC... [Concomitant]
     Indication: PRODUCT USED FOR UNKNOWN INDICATION
     Dosage: INHALATIEPOEDER, 250 ?G/DOSIS (MICROGRAM PER DOSIS) ()
     Route: 065
  3. PRAVASTATINE TABLET 40MG / BRAND NAME NOT SPECIFIEDPRAVASTATINE TAB... [Concomitant]
     Indication: PRODUCT USED FOR UNKNOWN INDICATION
     Dosage: TABLET, 40 MG (MILLIGRAM) ()
     Route: 065
  4. BRINZOLAMIDE OOGDRUPPELS 10MG/ML / BRAND NAME NOT SPECIFIEDBRINZOLA... [Concomitant]
     Indication: PRODUCT USED FOR UNKNOWN INDICATION
     Dosage: OOGDRUPPELS, 10 MG/ML (MILLIGRAM PER MILLILITER) ()
     Route: 065
  5. METFORMINE TABLET   850MG / BRAND NAME NOT SPECIFIEDMETFORMINE TABL... [Concomitant]
     Indication: PRODUCT USED FOR UNKNOWN INDICATION
     Dosage: TABLET, 850 MG (MILLIGRAM) ()
     Route: 065
  6. INSULINE LISPRO 100E/ML INJVLST / HUMALOG INJVLST 100E/ML FLACON 10... [Concomitant]
     Indication: PRODUCT USED FOR UNKNOWN INDICATION
     Dosage: INJECTIEVLOEISTOF, 100 EENHEDEN/ML (EENHEDEN PER MILLILITER) ()
     Route: 065

REACTIONS (2)
  - Visual impairment [Not Recovered/Not Resolved]
  - Retinal detachment [Not Recovered/Not Resolved]
